FAERS Safety Report 23911106 (Version 2)
Quarter: 2024Q4

REPORT INFORMATION
  Report Type: Spontaneous
  Country: CA (occurrence: CA)
  Receive Date: 20240528
  Receipt Date: 20241028
  Transmission Date: 20250115
  Serious: Yes (Other)
  Sender: PFIZER
  Company Number: CA-PFIZER INC-202400035845

PATIENT
  Age: 74 Year
  Sex: Male

DRUGS (2)
  1. RUXIENCE [Suspect]
     Active Substance: RITUXIMAB-PVVR
     Dosage: 500 MG ,DAY 1 AND DAY 15
     Route: 042
     Dates: start: 20240510
  2. RUXIENCE [Suspect]
     Active Substance: RITUXIMAB-PVVR
     Dosage: 160 ML ,DAY 1 AND DAY 15 (PARTIAL DOSE RECEIVED, AFTER 2 WEEKS 160ML TOTAL, PRESCRIBED DOSE 500MG)
     Route: 042
     Dates: start: 20240524

REACTIONS (8)
  - Cough [Recovered/Resolved]
  - Hyperhidrosis [Recovered/Resolved]
  - Flushing [Recovered/Resolved]
  - Discomfort [Recovered/Resolved]
  - Eructation [Recovered/Resolved]
  - Dizziness [Unknown]
  - Pallor [Unknown]
  - Cold sweat [Unknown]

NARRATIVE: CASE EVENT DATE: 20240524
